FAERS Safety Report 23296503 (Version 1)
Quarter: 2023Q4

REPORT INFORMATION
  Report Type: Other
  Country: US (occurrence: None)
  Receive Date: 20231214
  Receipt Date: 20231214
  Transmission Date: 20240109
  Serious: Yes (Other)
  Sender: FDA-Public Use
  Company Number: US-ROCHE-3474028

PATIENT

DRUGS (8)
  1. SUSVIMO [Suspect]
     Active Substance: RANIBIZUMAB
     Indication: Neovascular age-related macular degeneration
     Route: 065
  2. SUSVIMO [Suspect]
     Active Substance: RANIBIZUMAB
  3. SUSVIMO [Suspect]
     Active Substance: RANIBIZUMAB
  4. SUSVIMO [Suspect]
     Active Substance: RANIBIZUMAB
  5. SUSVIMO [Suspect]
     Active Substance: RANIBIZUMAB
  6. SUSVIMO [Suspect]
     Active Substance: RANIBIZUMAB
  7. LUCENTIS [Suspect]
     Active Substance: RANIBIZUMAB
     Indication: Neovascular age-related macular degeneration
     Route: 065
  8. LUCENTIS [Suspect]
     Active Substance: RANIBIZUMAB
     Indication: Diabetic retinal oedema

REACTIONS (2)
  - Glaucoma [Unknown]
  - Colorectal cancer [Unknown]
